FAERS Safety Report 9157401 (Version 1)
Quarter: 2013Q1

REPORT INFORMATION
  Report Type: Spontaneous
  Country: IT (occurrence: IT)
  Receive Date: 20130312
  Receipt Date: 20130312
  Transmission Date: 20140127
  Serious: No
  Sender: FDA-Public Use
  Company Number: IT-JNJFOC-20130301197

PATIENT
  Age: 60 Year
  Sex: Female

DRUGS (1)
  1. DUROGESIC [Suspect]
     Indication: FRACTURE
     Route: 062
     Dates: start: 20121002, end: 20130301

REACTIONS (6)
  - Agitation [Not Recovered/Not Resolved]
  - Constipation [Not Recovered/Not Resolved]
  - Hypertension [Not Recovered/Not Resolved]
  - Insomnia [Not Recovered/Not Resolved]
  - Paraesthesia [Not Recovered/Not Resolved]
  - Inappropriate schedule of drug administration [Recovered/Resolved]
